FAERS Safety Report 6047486-7 (Version None)
Quarter: 2009Q1

REPORT INFORMATION
  Report Type: 
  Country: None (occurrence: None)
  Receive Date: 20090122
  Receipt Date: 20090113
  Transmission Date: 20090719
  Serious: Yes (Hospitalization)
  Sender: FDA-Public Use
  Company Number: US-ROXANE LABORATORIES, INC.-2009-RO-00056RO

PATIENT
  Age: 11 Year
  Sex: Male

DRUGS (8)
  1. SERTRALINE [Suspect]
     Dosage: 25MG
  2. FUROSEMIDE [Suspect]
     Indication: HYPERVOLAEMIA
     Dosage: 40MG
  3. FUROSEMIDE [Suspect]
     Indication: URINE OUTPUT DECREASED
     Route: 042
  4. AMPHETAMINE AND DEXTROAMPHETAMINE SALTS [Suspect]
     Dosage: 40MG
  5. GUANFACINE HYDROCHLORIDE [Suspect]
     Dosage: 3MG
  6. ESKALITH [Suspect]
     Dosage: 900MG
  7. TOPIRAMATE [Suspect]
     Dosage: 200MG
  8. OLANZAPINE [Suspect]
     Dosage: 30MG

REACTIONS (3)
  - ABNORMAL BEHAVIOUR [None]
  - GLOMERULONEPHRITIS MINIMAL LESION [None]
  - NEPHROTIC SYNDROME [None]
